FAERS Safety Report 5076912-5 (Version None)
Quarter: 2006Q3

REPORT INFORMATION
  Report Type: 
  Country: None (occurrence: None)
  Receive Date: 20060810
  Receipt Date: 20060525
  Transmission Date: 20061208
  Serious: Yes (Other)
  Sender: FDA-Public Use
  Company Number: PHFR2006GB01824

PATIENT
  Age: 74 Year
  Sex: Male

DRUGS (4)
  1. ZOMETA [Suspect]
     Indication: METASTASES TO BONE
     Dosage: 4 MG, QMO
     Route: 042
     Dates: start: 20050316, end: 20060329
  2. MEDROXYPROGESTERONE [Concomitant]
     Indication: ANOREXIA
     Dosage: 300MG
     Route: 048
     Dates: start: 20050301
  3. PARACETAMOL WITH CODEINE PHOSPHATE [Concomitant]
     Indication: PAIN
     Dosage: 500MG/30MG
     Route: 048
  4. NSAID'S [Concomitant]
     Route: 065

REACTIONS (8)
  - BLOOD CALCIUM INCREASED [None]
  - BLOOD CREATININE INCREASED [None]
  - BLOOD UREA INCREASED [None]
  - BONE DISORDER [None]
  - GINGIVAL DISORDER [None]
  - OSTEONECROSIS [None]
  - TOOTH DISORDER [None]
  - TOOTH EXTRACTION [None]
